FAERS Safety Report 23166312 (Version 4)
Quarter: 2024Q4

REPORT INFORMATION
  Report Type: Spontaneous
  Country: JP (occurrence: JP)
  Receive Date: 20231109
  Receipt Date: 20241004
  Transmission Date: 20250115
  Serious: Yes (Hospitalization)
  Sender: EISAI
  Company Number: JP-Eisai-202305521_LEN-EC_P_1

PATIENT
  Age: 55 Year
  Sex: Female
  Weight: 66 kg

DRUGS (11)
  1. LENVIMA [Suspect]
     Active Substance: LENVATINIB
     Indication: Endometrial cancer recurrent
     Route: 048
     Dates: start: 20230124, end: 20230206
  2. LENVIMA [Suspect]
     Active Substance: LENVATINIB
     Route: 048
     Dates: start: 20230220, end: 20231022
  3. LENVIMA [Suspect]
     Active Substance: LENVATINIB
     Route: 048
     Dates: start: 20231023
  4. KEYTRUDA [Suspect]
     Active Substance: PEMBROLIZUMAB
     Indication: Endometrial cancer recurrent
     Route: 042
     Dates: start: 20230124, end: 20230124
  5. KEYTRUDA [Suspect]
     Active Substance: PEMBROLIZUMAB
     Route: 042
     Dates: start: 20230220, end: 20230626
  6. KEYTRUDA [Suspect]
     Active Substance: PEMBROLIZUMAB
     Route: 042
     Dates: start: 20230724, end: 20240724
  7. KEYTRUDA [Suspect]
     Active Substance: PEMBROLIZUMAB
     Route: 042
     Dates: start: 20230821, end: 20231002
  8. KEYTRUDA [Suspect]
     Active Substance: PEMBROLIZUMAB
     Route: 042
     Dates: start: 20231023, end: 20240701
  9. KEYTRUDA [Suspect]
     Active Substance: PEMBROLIZUMAB
     Route: 042
     Dates: start: 20240819
  10. AMLODIPINE [Concomitant]
     Active Substance: AMLODIPINE BESYLATE
     Indication: Hypertension
     Route: 048
  11. TELMISARTAN [Concomitant]
     Active Substance: TELMISARTAN
     Indication: Hypertension
     Route: 048
     Dates: start: 20230127

REACTIONS (5)
  - Malaise [Recovered/Resolved]
  - Hypertension [Recovered/Resolved]
  - Hepatic function abnormal [Recovered/Resolved]
  - Diarrhoea [Recovered/Resolved]
  - Hypothyroidism [Recovered/Resolved]

NARRATIVE: CASE EVENT DATE: 20230127
